FAERS Safety Report 15318810 (Version 1)
Quarter: 2018Q3

REPORT INFORMATION
  Report Type: Spontaneous
  Country: US (occurrence: US)
  Receive Date: 20180819
  Receipt Date: 20180819
  Transmission Date: 20181010
  Serious: Yes (Other)
  Sender: FDA-Public Use
  Company Number: None

PATIENT
  Age: 61 Year
  Sex: Male
  Weight: 102.6 kg

DRUGS (13)
  1. METFORMIN HYDROCHLORIDE TABLET USP 1000 MG [Suspect]
     Active Substance: METFORMIN HYDROCHLORIDE
     Indication: DIABETES MELLITUS
     Dosage: ?          QUANTITY:60 TABLET(S);?
     Route: 048
     Dates: start: 20180720, end: 20180819
  2. PLAVIX [Concomitant]
     Active Substance: CLOPIDOGREL BISULFATE
  3. TRICOR [Concomitant]
     Active Substance: FENOFIBRATE
  4. TOPROL XL [Concomitant]
     Active Substance: METOPROLOL SUCCINATE
  5. PROTONIX [Concomitant]
     Active Substance: PANTOPRAZOLE SODIUM
  6. D?3 [Concomitant]
     Active Substance: CHOLECALCIFEROL
  7. IMDUR [Concomitant]
     Active Substance: ISOSORBIDE MONONITRATE
  8. ZETIA [Concomitant]
     Active Substance: EZETIMIBE
  9. RANEXA [Concomitant]
     Active Substance: RANOLAZINE
  10. VITAMIN B12 [Concomitant]
     Active Substance: CYANOCOBALAMIN
  11. PLETAL [Concomitant]
     Active Substance: CILOSTAZOL
  12. FLOMAX [Concomitant]
     Active Substance: TAMSULOSIN HYDROCHLORIDE
  13. VITAMIN E [Concomitant]
     Active Substance: .ALPHA.-TOCOPHEROL

REACTIONS (5)
  - Nausea [None]
  - Abdominal discomfort [None]
  - Product contamination physical [None]
  - Productive cough [None]
  - Drug dose omission [None]

NARRATIVE: CASE EVENT DATE: 20180819
